FAERS Safety Report 6504538-2 (Version None)
Quarter: 2009Q4

REPORT INFORMATION
  Report Type: 
  Country: None (occurrence: None)
  Receive Date: 20091215
  Receipt Date: 20091204
  Transmission Date: 20100525
  Serious: Yes (Hospitalization)
  Sender: FDA-Public Use
  Company Number: 2009AC000321

PATIENT
  Age: 45 Year
  Sex: Female

DRUGS (10)
  1. DIGOXIN [Suspect]
     Indication: ATRIAL FIBRILLATION
     Dosage: 0.125 MG; QD; PO
     Route: 048
     Dates: start: 19960501
  2. VERAPAMIL [Concomitant]
  3. PLAVIX [Concomitant]
  4. ASPIRIN [Concomitant]
  5. ASPIRIN [Concomitant]
  6. VERAPAMIL [Concomitant]
  7. BETAPACE [Concomitant]
  8. PLAVIX [Concomitant]
  9. COUMADIN [Concomitant]
  10. ASPIRIN [Concomitant]

REACTIONS (15)
  - ARTHRALGIA [None]
  - ATRIAL FIBRILLATION [None]
  - DIZZINESS [None]
  - DYSPNOEA [None]
  - ECONOMIC PROBLEM [None]
  - EXOSTOSIS [None]
  - HEADACHE [None]
  - HYPOTENSION [None]
  - INFLUENZA [None]
  - INJURY [None]
  - JOINT SWELLING [None]
  - PALPITATIONS [None]
  - SINUS BRADYCARDIA [None]
  - SYNCOPE [None]
  - UPPER RESPIRATORY TRACT INFECTION [None]
